FAERS Safety Report 24592438 (Version 1)
Quarter: 2024Q4

REPORT INFORMATION
  Report Type: Spontaneous
  Country: US (occurrence: US)
  Receive Date: 20241108
  Receipt Date: 20241108
  Transmission Date: 20250115
  Serious: No
  Sender: EPIC PHARM
  Company Number: US-EPICPHARMA-US-2024EPCSPO01363

PATIENT

DRUGS (1)
  1. DEXTROAMPHETAMINE SACCHARATE, AMPHETAMINE ASPARTATE, DEXTROAMPHETAMINE [Suspect]
     Active Substance: AMPHETAMINE ASPARTATE\AMPHETAMINE SULFATE\DEXTROAMPHETAMINE SACCHARATE\DEXTROAMPHETAMINE SULFATE
     Indication: Attention deficit hyperactivity disorder
     Route: 065

REACTIONS (8)
  - Brain fog [Unknown]
  - Mood swings [Unknown]
  - Apathy [Unknown]
  - Abdominal discomfort [Unknown]
  - Fatigue [Unknown]
  - Therapeutic response changed [Unknown]
  - Product substitution issue [Unknown]
  - Drug ineffective [Unknown]
